FAERS Safety Report 24866673 (Version 1)
Quarter: 2025Q1

REPORT INFORMATION
  Report Type: Spontaneous
  Country: US (occurrence: US)
  Receive Date: 20250121
  Receipt Date: 20250121
  Transmission Date: 20250409
  Serious: Yes (Death, Other)
  Sender: CHEPLAPHARM
  Company Number: US-CHEPLA-2025000803

PATIENT
  Age: 43 Year

DRUGS (7)
  1. GANCICLOVIR [Suspect]
     Active Substance: GANCICLOVIR
     Indication: Epstein-Barr viraemia
  2. BORTEZOMIB [Suspect]
     Active Substance: BORTEZOMIB
     Indication: Epstein-Barr viraemia
  3. CYCLOPHOSPHAMIDE [Suspect]
     Active Substance: CYCLOPHOSPHAMIDE
  4. DOXORUBICIN [Suspect]
     Active Substance: DOXORUBICIN
  5. ETOPOSIDE [Suspect]
     Active Substance: ETOPOSIDE
  6. VINCRISTINE [Suspect]
     Active Substance: VINCRISTINE
  7. PREDNISONE [Suspect]
     Active Substance: PREDNISONE

REACTIONS (7)
  - Septic shock [Fatal]
  - Pancytopenia [Unknown]
  - Haemophagocytic lymphohistiocytosis [Unknown]
  - Streptococcal infection [Unknown]
  - Pyrexia [Not Recovered/Not Resolved]
  - Pleural effusion [Unknown]
  - Off label use [Unknown]
